FAERS Safety Report 20709391 (Version 1)
Quarter: 2022Q2

REPORT INFORMATION
  Report Type: Spontaneous
  Country: IE (occurrence: IE)
  Receive Date: 20220414
  Receipt Date: 20220414
  Transmission Date: 20220721
  Serious: Yes (Hospitalization, Other)
  Sender: FDA-Public Use
  Company Number: IE-LUPIN PHARMACEUTICALS INC.-2022-05568

PATIENT
  Sex: Male

DRUGS (9)
  1. LEVOTHYROXINE [Suspect]
     Active Substance: LEVOTHYROXINE
     Indication: Muscle building therapy
     Dosage: UNK
     Route: 048
  2. CLENBUTEROL [Suspect]
     Active Substance: CLENBUTEROL
     Indication: Muscle building therapy
     Dosage: UNK
     Route: 065
  3. LETROZOLE [Suspect]
     Active Substance: LETROZOLE
     Indication: Muscle building therapy
     Dosage: UNK
     Route: 065
  4. DROMOSTANOLONE [Suspect]
     Active Substance: DROMOSTANOLONE
     Indication: Muscle building therapy
     Dosage: UNK
     Route: 065
  5. FLUOXYMESTERONE [Suspect]
     Active Substance: FLUOXYMESTERONE
     Indication: Muscle building therapy
     Dosage: UNK
     Route: 065
  6. MESTEROLONE [Suspect]
     Active Substance: MESTEROLONE
     Indication: Muscle building therapy
     Dosage: UNK
     Route: 065
  7. OXANDROLONE [Suspect]
     Active Substance: OXANDROLONE
     Indication: Muscle building therapy
     Dosage: UNK
     Route: 065
  8. STANOZOLOL [Suspect]
     Active Substance: STANOZOLOL
     Indication: Muscle building therapy
     Route: 065
  9. TRENBOLONE [Suspect]
     Active Substance: TRENBOLONE
     Indication: Muscle building therapy
     Dosage: UNK
     Route: 065

REACTIONS (10)
  - Thyrotoxic periodic paralysis [Recovered/Resolved]
  - Hyperthyroidism [Recovered/Resolved]
  - Metabolic alkalosis [Recovered/Resolved]
  - Hypophosphataemia [Recovered/Resolved]
  - Rhabdomyolysis [Recovered/Resolved]
  - Myocardial fibrosis [Not Recovered/Not Resolved]
  - Blood testosterone increased [Not Recovered/Not Resolved]
  - Oestradiol increased [Not Recovered/Not Resolved]
  - Intentional product misuse [Unknown]
  - Anxiety [Unknown]
